FAERS Safety Report 10657930 (Version 1)
Quarter: 2014Q4

REPORT INFORMATION
  Report Type: Spontaneous
  Country: US (occurrence: US)
  Receive Date: 20141217
  Receipt Date: 20141217
  Transmission Date: 20150529
  Serious: No
  Sender: FDA-Public Use
  Company Number: US-BAUSCH-BL-2014-005120

PATIENT
  Age: 32 Year
  Sex: Female

DRUGS (5)
  1. XENAZINE [Suspect]
     Active Substance: TETRABENAZINE
     Route: 048
  2. XENAZINE [Suspect]
     Active Substance: TETRABENAZINE
     Dosage: 25 MG IN THE A.M. AND 37.5 MG ON THE 4TH WEEK
     Route: 048
  3. XENAZINE [Suspect]
     Active Substance: TETRABENAZINE
     Indication: TARDIVE DYSKINESIA
     Dosage: 12.5 MG IN THE A.M. AND 25 MG IN THE P.M ON THE 2ND WEEK
     Route: 048
  4. XENAZINE [Suspect]
     Active Substance: TETRABENAZINE
     Indication: TOURETTE^S DISORDER
     Dosage: 12.5 MG TWICE A DAY ON THE 1ST WEEK
     Route: 048
     Dates: start: 201408
  5. XENAZINE [Suspect]
     Active Substance: TETRABENAZINE
     Dosage: 25 MG TWICE A DAY ON THE 3RD WEEK
     Route: 048

REACTIONS (2)
  - Unevaluable event [Unknown]
  - Intentional product use issue [Recovered/Resolved]

NARRATIVE: CASE EVENT DATE: 201408
